FAERS Safety Report 16176749 (Version 2)
Quarter: 2019Q2

REPORT INFORMATION
  Report Type: Spontaneous
  Country: JP (occurrence: JP)
  Receive Date: 20190409
  Receipt Date: 20190426
  Transmission Date: 20190711
  Serious: Yes (Hospitalization)
  Sender: FDA-Public Use
  Company Number: JP-ALLERGAN-1905543US

PATIENT
  Sex: Male

DRUGS (2)
  1. BOTOX [Suspect]
     Active Substance: ONABOTULINUMTOXINA
     Dosage: UNK, SINGLE
     Route: 030
  2. BOTOX [Suspect]
     Active Substance: ONABOTULINUMTOXINA
     Indication: MUSCLE SPASMS
     Dosage: UNK, SINGLE
     Route: 030
     Dates: start: 20190125, end: 20190125

REACTIONS (7)
  - Nocturia [Recovered/Resolved]
  - Therapeutic product effect incomplete [Unknown]
  - Incontinence [Recovered/Resolved]
  - Limb injury [Recovered/Resolved]
  - Fall [Recovered/Resolved]
  - Pollakiuria [Recovered/Resolved]
  - Gait inability [Unknown]

NARRATIVE: CASE EVENT DATE: 201812
